FAERS Safety Report 14033084 (Version 5)
Quarter: 2017Q4

REPORT INFORMATION
  Report Type: Spontaneous
  Country: US (occurrence: US)
  Receive Date: 20171003
  Receipt Date: 20171120
  Transmission Date: 20180321
  Serious: No
  Sender: FDA-Public Use
  Company Number: US-PFIZER INC-2017417597

PATIENT
  Age: 67 Year
  Sex: Female
  Weight: 51 kg

DRUGS (4)
  1. ATORVASTATIN CALCIUM. [Concomitant]
     Active Substance: ATORVASTATIN CALCIUM
     Indication: BLOOD CHOLESTEROL ABNORMAL
     Dosage: 40 MG, DAILY (EVERY NIGHT)
  2. MELOXICAM. [Concomitant]
     Active Substance: MELOXICAM
     Indication: BURSITIS
     Dosage: 30 MG, AS NEEDED (15 MG, TAKE 2 AS NEEDED)
  3. PREMARIN [Suspect]
     Active Substance: ESTROGENS, CONJUGATED
     Indication: DYSPAREUNIA
  4. PREMARIN [Suspect]
     Active Substance: ESTROGENS, CONJUGATED
     Indication: VULVOVAGINAL DRYNESS
     Dosage: 0.625 MG, DAILY (EVERY OTHER DAY FOR A MONTH, THEN EVERY 3 THIRD DAY)
     Dates: start: 20170922, end: 2017

REACTIONS (6)
  - Skin warm [Not Recovered/Not Resolved]
  - Pain in extremity [Unknown]
  - Rash [Not Recovered/Not Resolved]
  - Paraesthesia [Not Recovered/Not Resolved]
  - Product use issue [Unknown]
  - Palmar erythema [Not Recovered/Not Resolved]

NARRATIVE: CASE EVENT DATE: 2017
